FAERS Safety Report 23741669 (Version 1)
Quarter: 2024Q2

REPORT INFORMATION
  Report Type: Spontaneous
  Country: US (occurrence: None)
  Receive Date: 20240412
  Receipt Date: 20240412
  Transmission Date: 20240716
  Serious: No
  Sender: FDA-Public Use
  Company Number: None

PATIENT
  Age: 43 Year
  Sex: Female
  Weight: 117.03 kg

DRUGS (6)
  1. DEXAMETHASONE [Suspect]
     Active Substance: DEXAMETHASONE
     Indication: Pain
     Dosage: FREQUENCY : ONCE;?
     Route: 008
     Dates: start: 20240410, end: 20240410
  2. DEXAMETHASONE [Suspect]
     Active Substance: DEXAMETHASONE
     Indication: Lumbar radiculopathy
  3. XYLOCAINE -MPF [Suspect]
     Active Substance: LIDOCAINE HYDROCHLORIDE
     Indication: Pain
     Dosage: FREQUENCY : ONCE;?
     Route: 008
     Dates: start: 20240410, end: 20240410
  4. XYLOCAINE -MPF [Suspect]
     Active Substance: LIDOCAINE HYDROCHLORIDE
     Indication: Lumbar radiculopathy
  5. OMNIPAQUE [Suspect]
     Active Substance: IOHEXOL
  6. PROPOFOL [Suspect]
     Active Substance: PROPOFOL

REACTIONS (6)
  - Cold sweat [None]
  - Dizziness [None]
  - Nausea [None]
  - Vomiting [None]
  - Blood glucose increased [None]
  - Injection related reaction [None]

NARRATIVE: CASE EVENT DATE: 20240410
